FAERS Safety Report 6973580-X (Version None)
Quarter: 2010Q3

REPORT INFORMATION
  Report Type: 
  Country: None (occurrence: None)
  Receive Date: 20100907
  Receipt Date: 20100824
  Transmission Date: 20110219
  Serious: Yes (Other)
  Sender: FDA-Public Use
  Company Number: AUR-APL-2010-02117

PATIENT
  Age: 40 Year
  Sex: Male

DRUGS (1)
  1. TOPIRAMATE [Suspect]
     Indication: MIGRAINE
     Dosage: 75MG, DAILY, ORAL
     Route: 048
     Dates: start: 20080918

REACTIONS (1)
  - ANDROGENETIC ALOPECIA [None]
